FAERS Safety Report 14489886 (Version 2)
Quarter: 2018Q1

REPORT INFORMATION
  Report Type: Spontaneous
  Country: JP (occurrence: JP)
  Receive Date: 20180206
  Receipt Date: 20180215
  Transmission Date: 20180509
  Serious: Yes (Other)
  Sender: FDA-Public Use
  Company Number: JP-SUN PHARMACEUTICAL INDUSTRIES LTD-2018RR-161844

PATIENT
  Age: 15 Year
  Sex: Male

DRUGS (4)
  1. SULPIRIDE [Suspect]
     Active Substance: SULPIRIDE
     Indication: SCHIZOTYPAL PERSONALITY DISORDER
     Dosage: UNK
     Route: 065
  2. HALOPERIDOL. [Suspect]
     Active Substance: HALOPERIDOL
     Indication: SCHIZOTYPAL PERSONALITY DISORDER
     Dosage: 10 MG, DAILY
     Route: 065
  3. LEVOMEPROMAZINE [Suspect]
     Active Substance: LEVOMEPROMAZINE
     Indication: SCHIZOTYPAL PERSONALITY DISORDER
     Dosage: UNK
     Route: 065
  4. IMIPRAMINE [Suspect]
     Active Substance: IMIPRAMINE
     Indication: SCHIZOTYPAL PERSONALITY DISORDER
     Dosage: UNK
     Route: 065

REACTIONS (4)
  - Parkinsonism [Unknown]
  - Neuroleptic malignant syndrome [Unknown]
  - Insomnia [Unknown]
  - Waxy flexibility [Unknown]
